FAERS Safety Report 4524762-8 (Version None)
Quarter: 2004Q4

REPORT INFORMATION
  Report Type: 
  Country: None (occurrence: None)
  Receive Date: 20041209
  Receipt Date: 20041126
  Transmission Date: 20050328
  Serious: Yes (Other)
  Sender: FDA-Public Use
  Company Number: 240785

PATIENT
  Age: 77 Year
  Sex: Male

DRUGS (5)
  1. NOVORAPID 30 MIX CHU FLEXPEN (INSULIN ASPART) SUSPENSION FOR INJECTION [Suspect]
     Indication: DIABETES MELLITUS
     Dosage: 8 IU, QD, SUBCUTANEOUS
     Route: 058
     Dates: start: 20040415, end: 20041123
  2. NOVORAPID CHU (INSULIN ASPART) SOLUTION FOR INJECTION, 100U/ML [Suspect]
     Indication: DIABETES MELLITUS
     Dosage: 5 - 14 IU QD, SUBCUTANEOUS
     Route: 058
     Dates: start: 20040324, end: 20041123
  3. FLUTRIA (TRICHLORMETHIAZIDE) [Concomitant]
  4. ENALAPRIL MALEATE [Concomitant]
  5. KINEDAK (EPALRESTAT) [Concomitant]

REACTIONS (4)
  - ALANINE AMINOTRANSFERASE INCREASED [None]
  - ASPARTATE AMINOTRANSFERASE INCREASED [None]
  - GAMMA-GLUTAMYLTRANSFERASE INCREASED [None]
  - HEPATIC FUNCTION ABNORMAL [None]
